FAERS Safety Report 19906838 (Version 1)
Quarter: 2021Q4

REPORT INFORMATION
  Report Type: Spontaneous
  Country: DE (occurrence: DE)
  Receive Date: 20211001
  Receipt Date: 20211001
  Transmission Date: 20220303
  Serious: Yes (Hospitalization)
  Sender: FDA-Public Use
  Company Number: DE-ADRED-06394-01

PATIENT
  Age: 82 Year
  Sex: Male

DRUGS (16)
  1. RAMIPRIL [Suspect]
     Active Substance: RAMIPRIL
     Indication: Product used for unknown indication
     Dosage: UNK (2.5 MG, 1-0-0-0, TABLETTEN)
     Route: 048
  2. SPIRONOLACTONE [Suspect]
     Active Substance: SPIRONOLACTONE
     Indication: Product used for unknown indication
     Dosage: UNK (50 MG, 1-0-0-0, TABLETTEN)
     Route: 048
  3. TORSEMIDE [Suspect]
     Active Substance: TORSEMIDE
     Indication: Product used for unknown indication
     Dosage: UNK (10 MG, 1-1-0-0, TABLETTEN)
     Route: 048
  4. MELPERONE [Concomitant]
     Active Substance: MELPERONE
     Dosage: UNK (25 MG, BEI BEDARF 1X, TABLETTEN)
     Route: 048
  5. MELPERONE [Concomitant]
     Active Substance: MELPERONE
     Dosage: UNK (25 MG, 0-0-0-2, TABLETTEN)
     Route: 048
  6. PANTOPRAZOLE [Concomitant]
     Active Substance: PANTOPRAZOLE
     Dosage: UNK (40 MG, 0-0-1-0, TABLETTEN)
     Route: 048
  7. NALOXONE HYDROCHLORIDE\TILIDINE HYDROCHLORIDE [Concomitant]
     Active Substance: NALOXONE HYDROCHLORIDE\TILIDINE HYDROCHLORIDE
     Dosage: UNK (8/100 MG, 1-0-1-0, TABLETTEN)
     Route: 048
  8. SIMVASTATIN [Concomitant]
     Active Substance: SIMVASTATIN
     Dosage: UNK (40 MG, 0-0-1-0, TABLETTEN)
     Route: 048
  9. RISPERIDONE [Concomitant]
     Active Substance: RISPERIDONE
     Dosage: UNK (1 MG, 0.5-0-1-0, TABLETTEN)
     Route: 048
  10. RISPERIDONE [Concomitant]
     Active Substance: RISPERIDONE
     Dosage: UNK (1 MG, BEI BEDARF, TABLETTEN)
     Route: 048
  11. TAMSULOSIN [Concomitant]
     Active Substance: TAMSULOSIN
     Dosage: UNK (0.4 MG, 1-0-0-0, TABLETTEN)
     Route: 048
  12. GLYCOPYRRONIUM\INDACATEROL [Concomitant]
     Active Substance: GLYCOPYRRONIUM\INDACATEROL
     Dosage: UNK (63/110 ?G, 1-0-0-0, PULVER ZUR INHALATION)
     Route: 055
  13. MOVICOL [Concomitant]
     Active Substance: POLYETHYLENE GLYCOL 3350\POTASSIUM CHLORIDE\SODIUM BICARBONATE\SODIUM CHLORIDE
     Dosage: UNK (10 MG, 1-0-0-0, PULVER ZUM ANR?HREN)
     Route: 048
  14. BENSERAZIDE\LEVODOPA [Concomitant]
     Active Substance: BENSERAZIDE\LEVODOPA
     Dosage: UNK (12.5/50 MG, 1-0-1-0, TABLETTEN)
     Route: 048
  15. METAMIZOLE [Concomitant]
     Active Substance: METAMIZOLE
     Dosage: UNK (500 MG, 1-1-1-1, TABLETTEN)
     Route: 048
  16. EDOXABAN TOSYLATE [Concomitant]
     Active Substance: EDOXABAN TOSYLATE
     Dosage: UNK (30 MG, 1-0-0-0, TABLETTEN)
     Route: 048

REACTIONS (6)
  - Electrolyte imbalance [Unknown]
  - Dehydration [Unknown]
  - General physical health deterioration [Unknown]
  - Hypotension [Unknown]
  - Diarrhoea [Unknown]
  - Renal impairment [Unknown]
